FAERS Safety Report 8816010 (Version 1)
Quarter: 2012Q4

REPORT INFORMATION
  Report Type: Report from Study
  Country: US (occurrence: US)
  Receive Date: 20120928
  Receipt Date: 20120928
  Transmission Date: 20130627
  Serious: Yes (Hospitalization, Other)
  Sender: FDA-Public Use
  Company Number: US-ABBOTT-12P-163-0981079-00

PATIENT
  Age: 31 None
  Sex: Female
  Weight: 86.26 kg

DRUGS (8)
  1. HUMIRA [Suspect]
     Indication: CROHN^S DISEASE
     Dates: start: 20111123, end: 20120910
  2. IMURAN [Suspect]
     Indication: CROHN^S DISEASE
     Dates: start: 2011, end: 201202
  3. ASACOL [Concomitant]
     Indication: CROHN^S DISEASE
  4. PREDNISONE [Concomitant]
     Indication: CROHN^S DISEASE
     Dosage: Attempted to wean off, but only weaned down to 10mg qd.
     Route: 048
     Dates: start: 201202, end: 201203
  5. PREDNISONE [Concomitant]
     Dosage: Weaned down, but could not get off of 10mg qd.
     Route: 048
     Dates: start: 201204
  6. PREDNISONE [Concomitant]
     Dosage: Weaned down to 10mg qd
     Route: 048
     Dates: start: 20120910
  7. PREDNISONE [Concomitant]
     Dosage: WEANED DOWN BUT CANNOT GET OFF IT
     Route: 048
     Dates: start: 201209
  8. REMICADE [Concomitant]
     Indication: CROHN^S DISEASE
     Dosage: Infusion, so far given once
     Route: 042
     Dates: start: 20120914

REACTIONS (12)
  - Proctitis [Recovering/Resolving]
  - Crohn^s disease [Unknown]
  - Crohn^s disease [Not Recovered/Not Resolved]
  - Pancreatitis [Recovered/Resolved]
  - Abdominal pain [Recovering/Resolving]
  - Dehydration [Recovered/Resolved]
  - Clostridium difficile infection [Recovered/Resolved]
  - Diarrhoea [Recovering/Resolving]
  - Abdominal pain [Recovered/Resolved]
  - Haematochezia [Recovering/Resolving]
  - Gastrointestinal inflammation [Not Recovered/Not Resolved]
  - Drug ineffective [Unknown]
